FAERS Safety Report 8924053 (Version 2)
Quarter: 2012Q4

REPORT INFORMATION
  Report Type: 
  Country: JP (occurrence: JP)
  Receive Date: 20121030
  Receipt Date: 20121030
  Transmission Date: 20130627
  Serious: Yes (Hospitalization)
  Sender: FDA-Public Use
  Company Number: JP-009507513-2012SP024686

PATIENT
  Age: 65 Year
  Sex: Male
  Weight: 75 kg

DRUGS (3)
  1. PEGINTERFERON ALFA-2B [Suspect]
     Indication: HEPATITIS C
     Dosage: 1.5 Microgram per kilogram, qw
     Route: 058
     Dates: start: 20120410, end: 20120419
  2. REBETOL [Suspect]
     Indication: HEPATITIS C
     Dosage: 800 mg, qd
     Route: 048
     Dates: start: 20120410, end: 20120419
  3. TELAVIC [Suspect]
     Indication: HEPATITIS C
     Dosage: 2250 milligrams, QD
     Route: 048
     Dates: start: 20120410, end: 20120417

REACTIONS (1)
  - Renal failure acute [Not Recovered/Not Resolved]
